FAERS Safety Report 11504590 (Version 1)
Quarter: 2015Q3

REPORT INFORMATION
  Report Type: Spontaneous
  Country: US (occurrence: US)
  Receive Date: 20150915
  Receipt Date: 20150915
  Transmission Date: 20151125
  Serious: No
  Sender: FDA-Public Use
  Company Number: US-ROCHE-794642

PATIENT
  Sex: Female

DRUGS (2)
  1. RIBAVIRIN. [Suspect]
     Active Substance: RIBAVIRIN
     Indication: HEPATITIS C
     Route: 065
  2. PEGASYS [Suspect]
     Active Substance: PEGINTERFERON ALFA-2A
     Indication: HEPATITIS C
     Route: 065

REACTIONS (14)
  - Oral pain [Unknown]
  - Fatigue [Unknown]
  - Vision blurred [Unknown]
  - Stomatitis [Unknown]
  - Ulcer [Unknown]
  - Dry mouth [Unknown]
  - Ill-defined disorder [Unknown]
  - Rash [Unknown]
  - Burning sensation [Unknown]
  - Hypersensitivity [Unknown]
  - Tongue eruption [Unknown]
  - Confusional state [Unknown]
  - Dizziness [Unknown]
  - Somnolence [Unknown]
